FAERS Safety Report 4619122-5 (Version None)
Quarter: 2005Q2

REPORT INFORMATION
  Report Type: 
  Country: None (occurrence: None)
  Receive Date: 20050321
  Receipt Date: 20040210
  Transmission Date: 20051028
  Serious: Yes (Hospitalization, Other)
  Sender: FDA-Public Use
  Company Number: 2003-11-1356

PATIENT
  Age: 45 Year
  Sex: Female
  Weight: 73.9363 kg

DRUGS (10)
  1. PEG-INTRON [Suspect]
     Indication: HEPATITIS C
     Dosage: 80 MCG QWK SUBCUTANEOUS
     Route: 058
     Dates: start: 20031007, end: 20031115
  2. REBETOL [Suspect]
     Indication: HEPATITIS C
     Dosage: 800 MG QD ORAL
     Route: 048
     Dates: start: 20031007, end: 20031115
  3. LASIX 40 MG QD [Concomitant]
  4. TYLENOL (CAPLET) [Concomitant]
  5. WELLBUTRIN [Concomitant]
  6. PROMETHAZINE [Concomitant]
  7. SPIRONOLACTONE [Concomitant]
  8. MULTI-VITAMINS [Concomitant]
  9. ACIPHEX [Concomitant]
  10. LACTULOSE [Concomitant]

REACTIONS (3)
  - BILIARY DYSKINESIA [None]
  - CHOLELITHIASIS [None]
  - PANCREATITIS [None]
